FAERS Safety Report 23918115 (Version 1)
Quarter: 2024Q2

REPORT INFORMATION
  Report Type: Spontaneous
  Country: US (occurrence: US)
  Receive Date: 20240530
  Receipt Date: 20240530
  Transmission Date: 20240715
  Serious: Yes (Hospitalization)
  Sender: FDA-Public Use
  Company Number: US-IGSA-BIG0029161

PATIENT
  Age: 50 Year
  Sex: Male

DRUGS (5)
  1. HUMAN IMMUNOGLOBULIN G [Suspect]
     Active Substance: HUMAN IMMUNOGLOBULIN G
     Indication: Myasthenia gravis
     Dosage: UNK UNKNOWN, UNKNOWN
     Route: 042
  2. HUMAN IMMUNOGLOBULIN G [Suspect]
     Active Substance: HUMAN IMMUNOGLOBULIN G
     Indication: Off label use
  3. METHYLPREDNISOLONE [Suspect]
     Active Substance: METHYLPREDNISOLONE
     Indication: Myasthenia gravis
     Dosage: UNK
  4. PYRIDOSTIGMINE [Suspect]
     Active Substance: PYRIDOSTIGMINE
     Indication: Myasthenia gravis
  5. METHIMAZOLE [Concomitant]
     Active Substance: METHIMAZOLE
     Indication: Graves^ disease
     Dosage: 5 MILLIGRAM

REACTIONS (7)
  - Thyrotoxic crisis [Recovering/Resolving]
  - Pyrexia [Recovered/Resolved]
  - Agitation [Recovering/Resolving]
  - Encephalopathy [Recovering/Resolving]
  - Cardiac failure [Recovering/Resolving]
  - Tachycardia [Recovering/Resolving]
  - Cardiomyopathy [Recovering/Resolving]
